FAERS Safety Report 19576647 (Version 1)
Quarter: 2021Q3

REPORT INFORMATION
  Report Type: Spontaneous
  Country: US (occurrence: US)
  Receive Date: 20210719
  Receipt Date: 20210719
  Transmission Date: 20211014
  Serious: No
  Sender: FDA-Public Use
  Company Number: None

PATIENT
  Age: 82 Year
  Sex: Male

DRUGS (1)
  1. WARFARIN (WARFARIN NA (EXELAN) 2.5MG TAB) [Suspect]
     Active Substance: WARFARIN SODIUM
     Indication: ATRIAL FIBRILLATION
     Dates: start: 20191120

REACTIONS (10)
  - Injury [None]
  - Pulmonary embolism [None]
  - Peripheral artery thrombosis [None]
  - Atelectasis [None]
  - Pleural effusion [None]
  - Embolism venous [None]
  - Venous thrombosis [None]
  - Peripheral embolism [None]
  - Venous thrombosis limb [None]
  - Right ventricular dysfunction [None]

NARRATIVE: CASE EVENT DATE: 20210603
